FAERS Safety Report 25595679 (Version 1)
Quarter: 2025Q3

REPORT INFORMATION
  Report Type: Report from Study
  Country: RU (occurrence: RU)
  Receive Date: 20250723
  Receipt Date: 20250723
  Transmission Date: 20251020
  Serious: Yes (Death, Other)
  Sender: ROCHE
  Company Number: RU-ROCHE-10000342719

PATIENT

DRUGS (2)
  1. OBINUTUZUMAB [Suspect]
     Active Substance: OBINUTUZUMAB
     Indication: Follicular lymphoma refractory
     Route: 065
  2. LENALIDOMIDE [Suspect]
     Active Substance: LENALIDOMIDE
     Indication: Follicular lymphoma refractory
     Route: 065

REACTIONS (7)
  - Bacterial infection [Unknown]
  - COVID-19 [Unknown]
  - Febrile neutropenia [Unknown]
  - Fatigue [Unknown]
  - Neutropenia [Unknown]
  - Rash [Unknown]
  - Toxic epidermal necrolysis [Fatal]
